FAERS Safety Report 4413829-0 (Version None)
Quarter: 2004Q3

REPORT INFORMATION
  Report Type: 
  Country: None (occurrence: None)
  Receive Date: 20040728
  Receipt Date: 20040719
  Transmission Date: 20050211
  Serious: Yes (Other)
  Sender: FDA-Public Use
  Company Number: 2004048619

PATIENT
  Age: 79 Year
  Sex: Female
  Weight: 45 kg

DRUGS (4)
  1. BEGALIN-P (AMPICILLIN, SULBACTAM) [Suspect]
     Indication: RESPIRATORY TRACT INFECTION
     Dosage: 9 GRAM (1 D), INTRAVENOUS
     Route: 042
     Dates: start: 20040525, end: 20040525
  2. GLUCOSE (GLUCOSE) [Concomitant]
  3. HEPARIN-FRACTION, CALCIUM SALT (HEPARIN-FRACTION, CALCIUM SALT) [Concomitant]
  4. ACENOCOUMAROL (ACENOCOUMAROL) [Concomitant]

REACTIONS (1)
  - ANAPHYLACTIC SHOCK [None]
